FAERS Safety Report 4393162-6 (Version None)
Quarter: 2004Q3

REPORT INFORMATION
  Report Type: 
  Country: None (occurrence: None)
  Receive Date: 20040702
  Receipt Date: 20040623
  Transmission Date: 20050211
  Serious: Yes (Other)
  Sender: FDA-Public Use
  Company Number: FR-JNJFOC-20040501499

PATIENT
  Sex: Female
  Weight: 2.4 kg

DRUGS (8)
  1. PROPULSID [Suspect]
     Indication: GASTROOESOPHAGEAL REFLUX DISEASE
     Dosage: SEE IMAGE
     Route: 048
     Dates: start: 20040506, end: 20040507
  2. PROPULSID [Suspect]
     Indication: GASTROOESOPHAGEAL REFLUX DISEASE
     Dosage: SEE IMAGE
     Route: 048
     Dates: start: 20040603
  3. UVESTEROL (UVESTEROL) [Concomitant]
  4. FERROUS SULFATE TAB [Concomitant]
  5. RIFAMYCIN (RIFAMYCIN) [Concomitant]
  6. NEO RECORMON (EPOETIN BETA) [Concomitant]
  7. MOTILIUM [Concomitant]
  8. DEBRIDAT (TRIMEBUTINE MALEATE) [Concomitant]

REACTIONS (3)
  - ELECTROCARDIOGRAM QT CORRECTED INTERVAL PROLONGED [None]
  - ELECTROCARDIOGRAM T WAVE ABNORMAL [None]
  - SINUS TACHYCARDIA [None]
